FAERS Safety Report 5199440-5 (Version None)
Quarter: 2006Q4

REPORT INFORMATION
  Report Type: 
  Country: None (occurrence: None)
  Receive Date: 20061016
  Receipt Date: 20060712
  Transmission Date: 20070319
  Serious: No
  Sender: FDA-Public Use
  Company Number: 2006SP002676

PATIENT
  Age: 67 Year
  Sex: Female
  Weight: 60.3284 kg

DRUGS (2)
  1. LUNESTA [Suspect]
     Indication: INSOMNIA
     Dosage: 2 MG;ORAL
     Route: 048
     Dates: start: 20060601
  2. CRESTOR [Concomitant]

REACTIONS (1)
  - MIDDLE INSOMNIA [None]
